FAERS Safety Report 10403285 (Version 1)
Quarter: 2014Q3

REPORT INFORMATION
  Report Type: Spontaneous
  Country: US (occurrence: None)
  Receive Date: 20140820
  Receipt Date: 20140820
  Transmission Date: 20150326
  Serious: Yes (Disabling, Other)
  Sender: FDA-Public Use
  Company Number: None

PATIENT
  Age: 50 Year
  Sex: Male
  Weight: 115.67 kg

DRUGS (2)
  1. ALLEGRA ALLERGY [Suspect]
     Active Substance: FEXOFENADINE HYDROCHLORIDE
     Indication: RHINORRHOEA
     Dosage: 1 TABLET  ONCE DAY BY MOUTH
     Route: 048
     Dates: start: 20140704, end: 20140706
  2. ALLEGRA ALLERGY [Suspect]
     Active Substance: FEXOFENADINE HYDROCHLORIDE
     Indication: SNEEZING
     Dosage: 1 TABLET  ONCE DAY BY MOUTH
     Route: 048
     Dates: start: 20140704, end: 20140706

REACTIONS (7)
  - Confusional state [None]
  - Deafness unilateral [None]
  - Blood pressure increased [None]
  - Concussion [None]
  - Road traffic accident [None]
  - Memory impairment [None]
  - Tympanic membrane perforation [None]

NARRATIVE: CASE EVENT DATE: 20140705
